FAERS Safety Report 6011386-9 (Version None)
Quarter: 2008Q4

REPORT INFORMATION
  Report Type: 
  Country: None (occurrence: None)
  Receive Date: 20081217
  Receipt Date: 20081217
  Transmission Date: 20090506
  Serious: Yes (Disabling, Other)
  Sender: FDA-Public Use
  Company Number: None

PATIENT
  Sex: Female
  Weight: 79.8331 kg

DRUGS (3)
  1. ENABLEX [Suspect]
     Indication: BLADDER DISORDER
     Dosage: 1 QD PO  1-2 YEARS
     Route: 048
  2. INTRACAPSULAR TENSION RING [Concomitant]
  3. HEALON V [Concomitant]

REACTIONS (12)
  - CATARACT [None]
  - CILIARY ZONULAR DEHISCENCE [None]
  - FLOPPY IRIS SYNDROME [None]
  - INTRAOCULAR LENS REPOSITIONING [None]
  - IRIS DISORDER [None]
  - IRIS HYPERPIGMENTATION [None]
  - IRITIS [None]
  - POST PROCEDURAL COMPLICATION [None]
  - PROCEDURAL COMPLICATION [None]
  - PUPILLARY DISORDER [None]
  - VISUAL ACUITY REDUCED [None]
  - VITREOUS LOSS [None]
